FAERS Safety Report 5403967-8 (Version None)
Quarter: 2007Q3

REPORT INFORMATION
  Report Type: 
  Country: None (occurrence: None)
  Receive Date: 20070802
  Receipt Date: 20070802
  Transmission Date: 20080115
  Serious: Yes (Other)
  Sender: FDA-Public Use
  Company Number: A0667479A

PATIENT
  Age: 74 Year
  Sex: Male

DRUGS (1)
  1. AQUAFRESH TOOTHPASTE [Suspect]
     Indication: DENTAL CLEANING

REACTIONS (5)
  - CHOKING [None]
  - DYSPNOEA [None]
  - PHARMACEUTICAL PRODUCT COMPLAINT [None]
  - PHARYNGOLARYNGEAL PAIN [None]
  - THROAT IRRITATION [None]
